FAERS Safety Report 25403403 (Version 1)
Quarter: 2025Q2

REPORT INFORMATION
  Report Type: Spontaneous
  Country: US (occurrence: US)
  Receive Date: 20250605
  Receipt Date: 20250605
  Transmission Date: 20250716
  Serious: Yes (Hospitalization)
  Sender: BIOMARIN
  Company Number: US-BIOMARINAP-US-2025-165696

PATIENT

DRUGS (1)
  1. VOXZOGO [Suspect]
     Active Substance: VOSORITIDE
     Indication: Osteochondrodysplasia
     Dosage: 0.40 MILLIGRAM, QD
     Route: 058
     Dates: start: 20250214

REACTIONS (3)
  - Cranial operation [Unknown]
  - Pyrexia [Unknown]
  - COVID-19 [Unknown]
